FAERS Safety Report 21543457 (Version 2)
Quarter: 2022Q4

REPORT INFORMATION
  Report Type: Spontaneous
  Country: JP (occurrence: JP)
  Receive Date: 20221102
  Receipt Date: 20221212
  Transmission Date: 20230112
  Serious: Yes (Hospitalization, Other)
  Sender: FDA-Public Use
  Company Number: JP-DSJP-DSJ-2022-113273

PATIENT
  Age: 8 Decade
  Sex: Male
  Weight: 49.9 kg

DRUGS (20)
  1. ENHERTU [Suspect]
     Active Substance: FAM-TRASTUZUMAB DERUXTECAN-NXKI
     Indication: Gastric cancer
     Dosage: 6.4 MG/KG, ONCE EVERY 3 WK
     Route: 041
     Dates: start: 20220222, end: 20220222
  2. ENHERTU [Suspect]
     Active Substance: FAM-TRASTUZUMAB DERUXTECAN-NXKI
     Indication: Adenocarcinoma gastric
     Dosage: 5.4 MG/KG, ONCE EVERY 3 WK
     Route: 041
     Dates: start: 20220323, end: 20220323
  3. ENHERTU [Suspect]
     Active Substance: FAM-TRASTUZUMAB DERUXTECAN-NXKI
     Dosage: 6.4 MG/KG, ONCE EVERY 3 WK
     Route: 041
     Dates: start: 20220420, end: 20220420
  4. ENHERTU [Suspect]
     Active Substance: FAM-TRASTUZUMAB DERUXTECAN-NXKI
     Dosage: 6.4 MG/KG, ONCE EVERY 3 WK
     Route: 041
     Dates: start: 20220511, end: 20220511
  5. ENHERTU [Suspect]
     Active Substance: FAM-TRASTUZUMAB DERUXTECAN-NXKI
     Dosage: 6.4 MG/KG, ONCE EVERY 3 WK
     Route: 041
     Dates: start: 20220601, end: 20220601
  6. ENHERTU [Suspect]
     Active Substance: FAM-TRASTUZUMAB DERUXTECAN-NXKI
     Dosage: 6.4 MG/KG, ONCE EVERY 3 WK
     Route: 041
     Dates: start: 20220622, end: 20220622
  7. ENHERTU [Suspect]
     Active Substance: FAM-TRASTUZUMAB DERUXTECAN-NXKI
     Dosage: 5.4 MG/KG, ONCE EVERY 3 WK
     Route: 041
     Dates: start: 20220713, end: 20220713
  8. ENHERTU [Suspect]
     Active Substance: FAM-TRASTUZUMAB DERUXTECAN-NXKI
     Dosage: 5.4 MG/KG, ONCE EVERY 3 WK
     Route: 041
     Dates: start: 20220803, end: 20220803
  9. ENHERTU [Suspect]
     Active Substance: FAM-TRASTUZUMAB DERUXTECAN-NXKI
     Dosage: 4.4 MG/KG, ONCE EVERY 3 WK
     Route: 041
     Dates: start: 20220914, end: 20220914
  10. APREPITANT [Concomitant]
     Active Substance: APREPITANT
     Indication: Nausea
     Dosage: 125 MG, QD
     Route: 048
     Dates: start: 20220222, end: 20220914
  11. EMEND [Concomitant]
     Active Substance: APREPITANT
     Indication: Nausea
     Dosage: 80 MG, QD
     Route: 048
     Dates: start: 20220222, end: 20220914
  12. METOCLOPRAMIDE [Concomitant]
     Active Substance: METOCLOPRAMIDE
     Indication: Nausea
     Dosage: 5 MG, QD
     Route: 048
     Dates: start: 20220222, end: 20220323
  13. FENTANYL [Concomitant]
     Active Substance: FENTANYL
     Indication: Cancer pain
     Dosage: 1 MG, QD
     Dates: start: 20210720
  14. ANAMORELIN HYDROCHLORIDE [Concomitant]
     Active Substance: ANAMORELIN HYDROCHLORIDE
     Indication: Cachexia
     Dosage: 100 MG, QD
     Route: 048
     Dates: start: 20220705, end: 20220719
  15. DECADRON [Concomitant]
     Active Substance: DEXAMETHASONE
     Indication: Nausea
     Dosage: 4 MG, QD
     Route: 048
     Dates: start: 20220726, end: 20220914
  16. RIKKUNSHITO [ATRACTYLODES LANCEA RHIZOME;CITRUS AURANTIUM PEEL;GLYCYRR [Concomitant]
     Indication: Decreased appetite
     Dosage: 2.5 G, TID
     Route: 048
     Dates: start: 20220810, end: 20220818
  17. FUROSEMIDE [Concomitant]
     Active Substance: FUROSEMIDE
     Indication: Portal hypertension
     Dosage: 20 MG, QD
     Route: 048
     Dates: start: 20220914
  18. FUROSEMIDE [Concomitant]
     Active Substance: FUROSEMIDE
     Indication: Oedema peripheral
  19. SPIRONOLACTONE [Concomitant]
     Active Substance: SPIRONOLACTONE
     Indication: Portal hypertension
     Dosage: 25 MG, QD
     Route: 048
     Dates: start: 20220914, end: 20220925
  20. SPIRONOLACTONE [Concomitant]
     Active Substance: SPIRONOLACTONE
     Indication: Oedema peripheral

REACTIONS (6)
  - Decreased appetite [Recovering/Resolving]
  - Febrile neutropenia [Recovered/Resolved]
  - Interstitial lung disease [Unknown]
  - Nausea [Unknown]
  - Gastrooesophageal reflux disease [Unknown]
  - Constipation [Unknown]

NARRATIVE: CASE EVENT DATE: 20220316
